FAERS Safety Report 11358713 (Version 1)
Quarter: 2015Q3

REPORT INFORMATION
  Report Type: Report from Study
  Country: US (occurrence: None)
  Receive Date: 20150716
  Receipt Date: 20150716
  Transmission Date: 20151125
  Serious: Yes (Hospitalization)
  Sender: FDA-Public Use
  Company Number: 2015PROUSA04243

PATIENT
  Age: 69 Year
  Sex: Male

DRUGS (11)
  1. IPILIMUMAB [Suspect]
     Active Substance: IPILIMUMAB
     Indication: PROSTATE CANCER METASTATIC
     Dosage: SINGLE
     Route: 042
     Dates: start: 20141014, end: 20141014
  2. IBUPROFEN. [Concomitant]
     Active Substance: IBUPROFEN
  3. CALCIUM WITH VITAMIN D (CALCIUM CARBONATE, COLECALCIFEROL) [Concomitant]
  4. CLOBETASOL 0.05% (CLOBETASOL PROPIONATE) [Concomitant]
  5. ZOFRAN (ONDANSETRON HYDROCHLORIDE) [Concomitant]
  6. ZOMETA [Concomitant]
     Active Substance: ZOLEDRONIC ACID
  7. LUPRON (LEUPRORELIN ACETATE) [Concomitant]
  8. CENTRUM SILVER [Concomitant]
     Active Substance: VITAMINS
  9. OMEGA 3 (FISH OIL) [Concomitant]
     Active Substance: OMEGA-3 FATTY ACIDS
  10. NAPROXEN (NAPROXEN SODIUM) [Concomitant]
  11. PROVENGE [Suspect]
     Active Substance: SIPULEUCEL-T
     Indication: PROSTATE CANCER METASTATIC
     Dosage: SINGLE
     Route: 042
     Dates: start: 20140825, end: 20140825

REACTIONS (1)
  - Influenza like illness [None]

NARRATIVE: CASE EVENT DATE: 20150105
